FAERS Safety Report 18525340 (Version 1)
Quarter: 2020Q4

REPORT INFORMATION
  Report Type: Spontaneous
  Country: US (occurrence: US)
  Receive Date: 20201119
  Receipt Date: 20201119
  Transmission Date: 20210114
  Serious: Yes (Other)
  Sender: FDA-Public Use
  Company Number: US-RIGEL PHARMACEUTICALS, INC.-2020FOS000588

PATIENT
  Sex: Male

DRUGS (1)
  1. TAVALISSE [Suspect]
     Active Substance: FOSTAMATINIB
     Indication: IMMUNE THROMBOCYTOPENIA
     Dosage: 150 MG, BID
     Route: 048
     Dates: start: 20200716

REACTIONS (6)
  - Epistaxis [Unknown]
  - Gingival bleeding [Unknown]
  - Rash macular [Unknown]
  - Haematochezia [Unknown]
  - Increased tendency to bruise [Unknown]
  - Blood urine present [Unknown]

NARRATIVE: CASE EVENT DATE: 2020
